FAERS Safety Report 24443841 (Version 2)
Quarter: 2024Q4

REPORT INFORMATION
  Report Type: Report from Study
  Country: US (occurrence: US)
  Receive Date: 20241016
  Receipt Date: 20241017
  Transmission Date: 20250115
  Serious: No
  Sender: ROCHE
  Company Number: US-ROCHE-2259633

PATIENT
  Age: 38 Year
  Sex: Female

DRUGS (6)
  1. RITUXAN [Suspect]
     Active Substance: RITUXIMAB
     Indication: Neuromyelitis optica spectrum disorder
     Route: 042
  2. ENSPRYNG [Suspect]
     Active Substance: SATRALIZUMAB-MWGE
     Indication: Neuromyelitis optica spectrum disorder
     Route: 058
     Dates: start: 20240119
  3. ENSPRYNG [Suspect]
     Active Substance: SATRALIZUMAB-MWGE
  4. ENSPRYNG [Suspect]
     Active Substance: SATRALIZUMAB-MWGE
  5. SULFASALAZINE [Concomitant]
     Active Substance: SULFASALAZINE
  6. IBUPROFEN [Concomitant]
     Active Substance: IBUPROFEN

REACTIONS (5)
  - Off label use [Unknown]
  - Rash [Unknown]
  - Anxiety [Unknown]
  - Panic attack [Unknown]
  - Thyroid disorder [Unknown]

NARRATIVE: CASE EVENT DATE: 20240119
